FAERS Safety Report 26153042 (Version 1)
Quarter: 2025Q4

REPORT INFORMATION
  Report Type: Spontaneous
  Country: EU (occurrence: EU)
  Receive Date: 20251214
  Receipt Date: 20251214
  Transmission Date: 20260118
  Serious: Yes (Other)
  Sender: CELLTRION
  Company Number: EU-SAMSUNG BIOEPIS-SB-2025-39844

PATIENT

DRUGS (6)
  1. INFLIXIMAB [Suspect]
     Active Substance: INFLIXIMAB
     Indication: Gastroenteritis Escherichia coli
  2. INFLIXIMAB [Suspect]
     Active Substance: INFLIXIMAB
     Indication: Haemolytic uraemic syndrome
  3. INFLIXIMAB [Suspect]
     Active Substance: INFLIXIMAB
     Indication: Carotid artery stenosis
  4. ECULIZUMAB [Suspect]
     Active Substance: ECULIZUMAB
     Indication: Gastroenteritis Escherichia coli
  5. ECULIZUMAB [Suspect]
     Active Substance: ECULIZUMAB
     Indication: Haemolytic uraemic syndrome
  6. NIMODIPINE [Concomitant]
     Active Substance: NIMODIPINE
     Indication: Carotid artery stenosis

REACTIONS (6)
  - Status epilepticus [Unknown]
  - Carotid artery stenosis [Recovered/Resolved]
  - Cerebral atrophy [Unknown]
  - Apallic syndrome [Unknown]
  - Drug effective for unapproved indication [Unknown]
  - Off label use [Unknown]
